FAERS Safety Report 8102624-7 (Version None)
Quarter: 2012Q1

REPORT INFORMATION
  Report Type: 
  Country: None (occurrence: None)
  Receive Date: 20120201
  Receipt Date: 20120124
  Transmission Date: 20120608
  Serious: Yes (Other)
  Sender: FDA-Public Use
  Company Number: US-SANOFI-AVENTIS-2012SA005512

PATIENT
  Sex: Male

DRUGS (6)
  1. SOLOSTAR [Suspect]
     Dates: end: 20120123
  2. APIDRA [Suspect]
     Dosage: 5 TIMES A DAY FOR A TOTAL DAILY DOSE OF 100 UNITS
     Route: 058
     Dates: end: 20120123
  3. LANTUS [Suspect]
     Dosage: DOSE:95 UNIT(S)
     Route: 058
  4. SOLOSTAR [Suspect]
     Dates: end: 20120123
  5. SOLOSTAR [Suspect]
  6. APIDRA [Suspect]
     Dosage: 5 TIMES A DAY FOR A TOTAL DAILY DOSE OF 100 UNITS
     Route: 058
     Dates: end: 20120123

REACTIONS (6)
  - CONVULSION [None]
  - DYSPNOEA [None]
  - SYNCOPE [None]
  - BLOOD GLUCOSE INCREASED [None]
  - DIZZINESS [None]
  - COGNITIVE DISORDER [None]
